FAERS Safety Report 5368697-X (Version None)
Quarter: 2007Q2

REPORT INFORMATION
  Report Type: 
  Country: None (occurrence: None)
  Receive Date: 20070625
  Receipt Date: 20070403
  Transmission Date: 20071010
  Serious: No
  Sender: FDA-Public Use
  Company Number: US-BRISTOL-MYERS SQUIBB COMPANY-13737002

PATIENT
  Sex: Female
  Weight: 68 kg

DRUGS (9)
  1. ORENCIA [Suspect]
     Indication: RHEUMATOID ARTHRITIS
     Dates: start: 20070322
  2. ACIPHEX [Concomitant]
  3. WELLBUTRIN [Concomitant]
  4. LITHIUM CARBONATE [Concomitant]
  5. XANAX [Concomitant]
  6. AMBIEN [Concomitant]
  7. MACRODANTIN [Concomitant]
  8. CALCIUM + VITAMIN D [Concomitant]
  9. ALEVE [Concomitant]

REACTIONS (3)
  - PAIN [None]
  - PRURITUS [None]
  - RASH [None]
